FAERS Safety Report 7745302-6 (Version None)
Quarter: 2011Q3

REPORT INFORMATION
  Report Type: 
  Country: None (occurrence: None)
  Receive Date: 20110908
  Receipt Date: 20110829
  Transmission Date: 20111222
  Serious: Yes (Disabling, Other)
  Sender: FDA-Public Use
  Company Number: NSR_00253_2011

PATIENT
  Sex: Female
  Weight: 58.9676 kg

DRUGS (4)
  1. LAMOTRIGINE [Suspect]
     Indication: DEPRESSION
     Dosage: 100 MG, BID, ORAL
     Route: 048
     Dates: start: 20110720, end: 20110726
  2. LAMICTAL [Concomitant]
  3. CLONOPIN [Concomitant]
  4. ZOLOFT [Concomitant]

REACTIONS (15)
  - FEELING ABNORMAL [None]
  - CONFUSIONAL STATE [None]
  - FATIGUE [None]
  - DEPRESSION [None]
  - DIZZINESS [None]
  - HEADACHE [None]
  - CONDITION AGGRAVATED [None]
  - SEDATION [None]
  - PRODUCT QUALITY ISSUE [None]
  - SUICIDAL IDEATION [None]
  - ANXIETY [None]
  - DISTURBANCE IN ATTENTION [None]
  - VISION BLURRED [None]
  - NAUSEA [None]
  - PRODUCT SUBSTITUTION ISSUE [None]
